FAERS Safety Report 4694918-2 (Version None)
Quarter: 2005Q2

REPORT INFORMATION
  Report Type: 
  Country: None (occurrence: None)
  Receive Date: 20050620
  Receipt Date: 20050607
  Transmission Date: 20051028
  Serious: Yes (Hospitalization)
  Sender: FDA-Public Use
  Company Number: GXKR2005US01213

PATIENT
  Age: 73 Year
  Sex: Female

DRUGS (7)
  1. METOPROLOL SUCCINATE [Suspect]
     Dosage: 50 MG, QD
  2. LISINOPRIL [Suspect]
     Dosage: 20 MG, BID
  3. HYDROCHLOROTHIAZIDE [Suspect]
     Dosage: 12.5 MG, BID
  4. FELODIPINE [Suspect]
     Dosage: 5 MG, QD
  5. CLONIDINE [Suspect]
     Dosage: 0.2 MG, BID
  6. DILTIAZEM [Suspect]
     Dosage: 180 MG, QD
  7. 2 OTHER UNKNOWN DRUGS () [Suspect]

REACTIONS (9)
  - ASTHENIA [None]
  - BLOOD PRESSURE INCREASED [None]
  - DIZZINESS [None]
  - DRUG INTERACTION [None]
  - DYSPNOEA EXERTIONAL [None]
  - EXTRASYSTOLES [None]
  - FATIGUE [None]
  - NODAL RHYTHM [None]
  - SINUS BRADYCARDIA [None]
